FAERS Safety Report 23098077 (Version 4)
Quarter: 2024Q2

REPORT INFORMATION
  Report Type: Report from Study
  Country: GB (occurrence: GB)
  Receive Date: 20231023
  Receipt Date: 20240424
  Transmission Date: 20240715
  Serious: Yes (Other)
  Sender: FDA-Public Use
  Company Number: GB-SANDOZ-SDZ2023GB001637

PATIENT
  Sex: Female

DRUGS (4)
  1. OMNITROPE [Suspect]
     Active Substance: SOMATROPIN
     Dosage: 0.70 MG, QD, EVENING FOR 7 DAYS
     Route: 058
     Dates: start: 20230412
  2. OMNITROPE [Suspect]
     Active Substance: SOMATROPIN
     Dosage: 1.4 MG, QD, EVENING FOR 349 DAYS
     Route: 058
     Dates: start: 20230413
  3. OMNITROPE [Suspect]
     Active Substance: SOMATROPIN
     Dosage: 0.70 MG, QOD
     Route: 058
     Dates: start: 20230413
  4. OMNITROPE [Suspect]
     Active Substance: SOMATROPIN
     Indication: Pituitary enlargement
     Dosage: 0.9 MG, QD
     Route: 058
     Dates: start: 20230413

REACTIONS (11)
  - Brain neoplasm [Unknown]
  - Pain [Unknown]
  - Malaise [Unknown]
  - Incorrect dose administered [Unknown]
  - Medication error [Unknown]
  - Off label use [Unknown]
  - Product dose omission issue [Unknown]
  - Treatment noncompliance [Unknown]
  - Fatigue [Unknown]
  - Depressed mood [Unknown]
  - Illness [Unknown]
